FAERS Safety Report 7239530-6 (Version None)
Quarter: 2011Q1

REPORT INFORMATION
  Report Type: 
  Country: None (occurrence: None)
  Receive Date: 20110121
  Receipt Date: 20110112
  Transmission Date: 20110831
  Serious: Yes (Life-Threatening)
  Sender: FDA-Public Use
  Company Number: US-MERCK-1101USA01683

PATIENT
  Age: 44 Year
  Sex: Male

DRUGS (1)
  1. VYTORIN [Suspect]
     Indication: DYSLIPIDAEMIA
     Route: 048

REACTIONS (3)
  - HYPOTHYROIDISM [None]
  - RENAL FAILURE ACUTE [None]
  - RHABDOMYOLYSIS [None]
